FAERS Safety Report 10631340 (Version 1)
Quarter: 2014Q4

REPORT INFORMATION
  Report Type: Spontaneous
  Country: US (occurrence: US)
  Receive Date: 20141205
  Receipt Date: 20141205
  Transmission Date: 20150529
  Serious: No
  Sender: FDA-Public Use
  Company Number: US-BRISTOL-MYERS SQUIBB COMPANY-21497037

PATIENT

DRUGS (3)
  1. INDERAL [Interacting]
     Active Substance: PROPRANOLOL HYDROCHLORIDE
  2. ABILIFY [Suspect]
     Active Substance: ARIPIPRAZOLE
  3. LEXAPRO [Interacting]
     Active Substance: ESCITALOPRAM OXALATE

REACTIONS (1)
  - Drug interaction [Unknown]
